FAERS Safety Report 25701546 (Version 1)
Quarter: 2025Q3

REPORT INFORMATION
  Report Type: Spontaneous
  Country: TR (occurrence: TR)
  Receive Date: 20250819
  Receipt Date: 20250819
  Transmission Date: 20251021
  Serious: Yes (Death, Other)
  Sender: AMGEN
  Company Number: TR-AMGEN-TURSP2025161709

PATIENT

DRUGS (1)
  1. BEVACIZUMAB [Suspect]
     Active Substance: BEVACIZUMAB
     Indication: Brain neoplasm
     Route: 065

REACTIONS (8)
  - Death [Fatal]
  - Central nervous system neoplasm [Unknown]
  - Metastases to spine [Unknown]
  - Metastases to meninges [Unknown]
  - Off label use [Unknown]
  - Toxicity to various agents [Unknown]
  - Therapeutic response unexpected [Unknown]
  - Therapy partial responder [Unknown]
